FAERS Safety Report 20144980 (Version 1)
Quarter: 2021Q4

REPORT INFORMATION
  Report Type: Spontaneous
  Country: US (occurrence: None)
  Receive Date: 20211203
  Receipt Date: 20211203
  Transmission Date: 20220303
  Serious: Yes (Hospitalization)
  Sender: FDA-Public Use
  Company Number: US-ROCHE-2968160

PATIENT
  Age: 59 Year
  Sex: Female
  Weight: 103 kg

DRUGS (4)
  1. TOCILIZUMAB [Suspect]
     Active Substance: TOCILIZUMAB
     Indication: COVID-19
     Route: 042
     Dates: start: 20211111, end: 20211111
  2. DEXAMETHASONE [Concomitant]
     Active Substance: DEXAMETHASONE
  3. ROCEPHIN [Concomitant]
     Active Substance: CEFTRIAXONE SODIUM
  4. REMDESIVIR [Concomitant]
     Active Substance: REMDESIVIR

REACTIONS (9)
  - Malaise [Unknown]
  - Pyrexia [Unknown]
  - Productive cough [Unknown]
  - Chills [Unknown]
  - Malaise [Unknown]
  - Headache [Unknown]
  - Staphylococcal infection [Unknown]
  - Pneumonia [Unknown]
  - Off label use [Unknown]

NARRATIVE: CASE EVENT DATE: 20211118
